FAERS Safety Report 8263503-8 (Version None)
Quarter: 2012Q2

REPORT INFORMATION
  Report Type: 
  Country: None (occurrence: None)
  Receive Date: 20120405
  Receipt Date: 20120402
  Transmission Date: 20120825
  Serious: Yes (Hospitalization, Other)
  Sender: FDA-Public Use
  Company Number: US-PFIZER INC-2012083721

PATIENT
  Sex: Male
  Weight: 74.83 kg

DRUGS (6)
  1. PROSCAR [Concomitant]
     Dosage: UNK
  2. TAMSULOSIN [Concomitant]
     Dosage: UNK
  3. LIPITOR [Suspect]
     Dosage: 40 MG, 1X/DAY
     Route: 048
  4. METOPROLOL [Concomitant]
     Dosage: UNK
  5. SINEMET [Concomitant]
     Indication: PARKINSONISM
     Dosage: UNK
  6. LIPITOR [Suspect]
     Indication: BLOOD CHOLESTEROL INCREASED
     Dosage: UNK, 1X/DAY
     Route: 048

REACTIONS (3)
  - FALL [None]
  - HIP FRACTURE [None]
  - THROMBOSIS [None]
